FAERS Safety Report 10285185 (Version 13)
Quarter: 2015Q4

REPORT INFORMATION
  Report Type: Report from Study
  Country: CA (occurrence: CA)
  Receive Date: 20140708
  Receipt Date: 20151224
  Transmission Date: 20160304
  Serious: Yes (Other)
  Sender: FDA-Public Use
  Company Number: CA-ROCHE-1267909

PATIENT
  Age: 49 Year
  Sex: Female
  Weight: 79 kg

DRUGS (7)
  1. ACTEMRA [Suspect]
     Active Substance: TOCILIZUMAB
     Route: 042
     Dates: start: 20150923
  2. NAPROXEN. [Concomitant]
     Active Substance: NAPROXEN
  3. ACTEMRA [Suspect]
     Active Substance: TOCILIZUMAB
     Route: 042
     Dates: start: 20140219
  4. PREVACID [Concomitant]
     Active Substance: LANSOPRAZOLE
  5. ACTEMRA [Suspect]
     Active Substance: TOCILIZUMAB
     Indication: RHEUMATOID ARTHRITIS
     Route: 042
     Dates: start: 20121121
  6. METHOTREXATE [Suspect]
     Active Substance: METHOTREXATE
     Indication: PRODUCT USED FOR UNKNOWN INDICATION
     Route: 065
  7. SULFASALAZINE. [Concomitant]
     Active Substance: SULFASALAZINE

REACTIONS (11)
  - Oedema peripheral [Not Recovered/Not Resolved]
  - Blood pressure increased [Unknown]
  - Asthma [Not Recovered/Not Resolved]
  - Ovarian fibroma [Recovered/Resolved]
  - Infection [Not Recovered/Not Resolved]
  - Bursitis [Unknown]
  - Rheumatoid nodule [Unknown]
  - Bronchitis viral [Recovered/Resolved]
  - Wound [Recovering/Resolving]
  - Diverticulitis [Recovering/Resolving]
  - Pain in extremity [Not Recovered/Not Resolved]

NARRATIVE: CASE EVENT DATE: 20140703
